FAERS Safety Report 24444544 (Version 2)
Quarter: 2024Q4

REPORT INFORMATION
  Report Type: Report from Study
  Country: CA (occurrence: CA)
  Receive Date: 20241016
  Receipt Date: 20241017
  Transmission Date: 20250115
  Serious: No
  Sender: ROCHE
  Company Number: CA-ROCHE-2713656

PATIENT
  Age: 67 Year
  Sex: Female
  Weight: 69.9 kg

DRUGS (14)
  1. RITUXAN [Suspect]
     Active Substance: RITUXIMAB
     Indication: Neuromyelitis optica spectrum disorder
     Dosage: RECENT INFUSION DATE: 02/JUL/2020? FREQUENCY TEXT:DAY 1, DAY 15
     Route: 041
     Dates: start: 20200618
  2. RITUXAN [Suspect]
     Active Substance: RITUXIMAB
     Indication: Rheumatoid arthritis
     Route: 041
  3. RITUXAN [Suspect]
     Active Substance: RITUXIMAB
     Route: 041
  4. RITUXAN [Suspect]
     Active Substance: RITUXIMAB
     Route: 041
  5. SOLU-MEDROL [Suspect]
     Active Substance: METHYLPREDNISOLONE SODIUM SUCCINATE
     Indication: Neuromyelitis optica spectrum disorder
     Route: 065
  6. BENADRYL [Concomitant]
     Active Substance: DIPHENHYDRAMINE HYDROCHLORIDE
     Indication: Premedication
     Route: 048
     Dates: start: 20200618
  7. LEVOTHYROXINE [Concomitant]
     Active Substance: LEVOTHYROXINE
     Indication: Product used for unknown indication
  8. POLYETHYLENE GLYCOL 3350 [Concomitant]
     Active Substance: POLYETHYLENE GLYCOL 3350
     Indication: Product used for unknown indication
  9. TYLENOL [Concomitant]
     Active Substance: ACETAMINOPHEN
     Indication: Premedication
     Route: 048
     Dates: start: 20190618
  10. VITAMIN C [Concomitant]
     Active Substance: ASCORBIC ACID
     Indication: Product used for unknown indication
  11. MAGNESIUM [Concomitant]
     Active Substance: MAGNESIUM
     Indication: Product used for unknown indication
  12. CALCIUM [Concomitant]
     Active Substance: CALCIUM
     Indication: Product used for unknown indication
  13. TEA TREE [Concomitant]
     Active Substance: GLYCERIN
     Indication: Product used for unknown indication
  14. JUBLIA [Concomitant]
     Active Substance: EFINACONAZOLE
     Indication: Fungal foot infection

REACTIONS (15)
  - Cystitis [Recovered/Resolved]
  - Localised infection [Recovering/Resolving]
  - Oral herpes [Recovered/Resolved]
  - Fungal foot infection [Not Recovered/Not Resolved]
  - Off label use [Unknown]
  - Tooth disorder [Unknown]
  - Walking aid user [Unknown]
  - Pyrexia [Unknown]
  - Insomnia [Unknown]
  - Sleep disorder [Unknown]
  - Vulvovaginal mycotic infection [Unknown]
  - Hordeolum [Unknown]
  - Pain [Unknown]
  - Dry eye [Unknown]
  - Localised infection [Not Recovered/Not Resolved]
